FAERS Safety Report 6615205-9 (Version None)
Quarter: 2010Q1

REPORT INFORMATION
  Report Type: 
  Country: None (occurrence: None)
  Receive Date: 20100305
  Receipt Date: 20100303
  Transmission Date: 20100710
  Serious: Yes (Hospitalization, Other)
  Sender: FDA-Public Use
  Company Number: PHEH2009US17198

PATIENT
  Sex: Female

DRUGS (1)
  1. FEMARA [Suspect]
     Dosage: 2.5 MG, QD
     Route: 048
     Dates: start: 20091105, end: 20091130

REACTIONS (5)
  - BILE DUCT CANCER [None]
  - BREAST CANCER [None]
  - CHOLECYSTECTOMY [None]
  - HEPATIC MASS [None]
  - PANCREATIC CARCINOMA [None]
